FAERS Safety Report 11468004 (Version 1)
Quarter: 2015Q3

REPORT INFORMATION
  Report Type: Spontaneous
  Country: US (occurrence: US)
  Receive Date: 20150908
  Receipt Date: 20150908
  Transmission Date: 20151125
  Serious: No
  Sender: FDA-Public Use
  Company Number: US-PFIZER INC-2015287304

PATIENT
  Age: 36 Year
  Sex: Male

DRUGS (6)
  1. DOCETAXEL. [Suspect]
     Active Substance: DOCETAXEL
     Indication: THYMOMA MALIGNANT
     Dosage: 6 CYCLE
  2. GEMCITABINE HYDROCHLORIDE. [Suspect]
     Active Substance: GEMCITABINE HYDROCHLORIDE
     Indication: THYMOMA MALIGNANT
     Dosage: UNK, CYCLIC
  3. GEMCITABINE HYDROCHLORIDE. [Suspect]
     Active Substance: GEMCITABINE HYDROCHLORIDE
     Dosage: UNK, CYCLIC
     Dates: start: 20110908
  4. CARBOPLATIN. [Suspect]
     Active Substance: CARBOPLATIN
     Dosage: UNK, CYCLIC
     Dates: start: 20110908
  5. ZOMETA [Suspect]
     Active Substance: ZOLEDRONIC ACID
     Indication: THYMOMA MALIGNANT
     Dosage: UNK
  6. CARBOPLATIN. [Suspect]
     Active Substance: CARBOPLATIN
     Indication: THYMOMA MALIGNANT
     Dosage: UNK, CYCLIC

REACTIONS (2)
  - Disease progression [Unknown]
  - Thymoma malignant [Unknown]

NARRATIVE: CASE EVENT DATE: 201110
